FAERS Safety Report 12864319 (Version 1)
Quarter: 2016Q4

REPORT INFORMATION
  Report Type: Spontaneous
  Country: US (occurrence: US)
  Receive Date: 20161020
  Receipt Date: 20161020
  Transmission Date: 20170207
  Serious: No
  Sender: FDA-Public Use
  Company Number: US-009507513-1610USA010271

PATIENT
  Age: 65 Year
  Sex: Female

DRUGS (1)
  1. BELSOMRA [Suspect]
     Active Substance: SUVOREXANT
     Dosage: 15 MG, ONCE DAILY
     Route: 048

REACTIONS (2)
  - Abnormal dreams [Recovered/Resolved]
  - Nightmare [Recovered/Resolved]
